FAERS Safety Report 6132967-8 (Version None)
Quarter: 2009Q1

REPORT INFORMATION
  Report Type: 
  Country: None (occurrence: None)
  Receive Date: 20090326
  Receipt Date: 20081023
  Transmission Date: 20090719
  Serious: Yes (Hospitalization)
  Sender: FDA-Public Use
  Company Number: US-JNJFOC-20090304206

PATIENT
  Age: 55 Year
  Sex: Male

DRUGS (15)
  1. DARUNAVIR [Suspect]
     Indication: HIV INFECTION
  2. ETRAVIRINE [Suspect]
     Indication: HIV INFECTION
  3. MARAVIROC [Suspect]
     Indication: HIV INFECTION
  4. RALTEGRAVIR [Suspect]
     Indication: HIV INFECTION
  5. RITONAVIR [Suspect]
     Indication: HIV INFECTION
  6. IMODIUM [Concomitant]
  7. AZITHROMYCIN [Concomitant]
  8. FLUCONAZOLE [Concomitant]
  9. ATENOLOL [Concomitant]
  10. ATOVAQUONE [Concomitant]
  11. GEMFIBROZIL [Concomitant]
  12. GABAPENTIN [Concomitant]
  13. HYDROXYZINE [Concomitant]
  14. RANITIDINE [Concomitant]
  15. ZOLPIDEM [Concomitant]

REACTIONS (1)
  - EPISTAXIS [None]
